FAERS Safety Report 7516059-9 (Version None)
Quarter: 2011Q2

REPORT INFORMATION
  Report Type: 
  Country: None (occurrence: None)
  Receive Date: 20110601
  Receipt Date: 20110527
  Transmission Date: 20111010
  Serious: Yes (Other)
  Sender: FDA-Public Use
  Company Number: CZ-ABBOTT-11P-217-0725368-00

PATIENT
  Sex: Male
  Weight: 96 kg

DRUGS (5)
  1. OMEPRAZOLE [Concomitant]
     Indication: PRODUCT USED FOR UNKNOWN INDICATION
  2. TRAMADOL HCL [Concomitant]
     Indication: PAIN
  3. HUMIRA [Suspect]
     Indication: PSORIATIC ARTHROPATHY
     Route: 058
     Dates: start: 20080801
  4. RIVAROXABAN [Concomitant]
     Indication: PRODUCT USED FOR UNKNOWN INDICATION
     Dates: start: 20100421
  5. NSA [Concomitant]
     Indication: PRODUCT USED FOR UNKNOWN INDICATION

REACTIONS (9)
  - HIP SURGERY [None]
  - OSTEOARTHRITIS [None]
  - CHOLELITHIASIS [None]
  - PSORIASIS [None]
  - GAIT DISTURBANCE [None]
  - OSTEONECROSIS [None]
  - ARTHRITIS [None]
  - ARTHRALGIA [None]
  - GOUT [None]
